FAERS Safety Report 11973011 (Version 1)
Quarter: 2016Q1

REPORT INFORMATION
  Report Type: Spontaneous
  Country: US (occurrence: US)
  Receive Date: 20160128
  Receipt Date: 20160128
  Transmission Date: 20160526
  Serious: No
  Sender: FDA-Public Use
  Company Number: US-LUNDBECK-DKLU2008108

PATIENT
  Sex: Female

DRUGS (1)
  1. ONFI [Suspect]
     Active Substance: CLOBAZAM
     Indication: EPILEPSY
     Route: 065

REACTIONS (7)
  - Parasomnia [Unknown]
  - Aphasia [Unknown]
  - Disturbance in attention [Unknown]
  - Sleep paralysis [Unknown]
  - Confusional state [Not Recovered/Not Resolved]
  - Clumsiness [Unknown]
  - Amnesia [Not Recovered/Not Resolved]
